FAERS Safety Report 8646814 (Version 3)
Quarter: 2012Q4

REPORT INFORMATION
  Report Type: 
  Country: US (occurrence: US)
  Receive Date: 20120703
  Receipt Date: 20120913
  Transmission Date: 20130627
  Serious: No
  Sender: FDA-Public Use
  Company Number: US-PFIZER INC-2012156131

PATIENT
  Sex: Female

DRUGS (2)
  1. TOVIAZ [Suspect]
     Dosage: 4 mg, UNK
  2. TOVIAZ [Suspect]
     Dosage: 8 mg, UNK

REACTIONS (4)
  - Dry mouth [Recovering/Resolving]
  - Oral discomfort [Unknown]
  - Dysphagia [Unknown]
  - Dysuria [Recovering/Resolving]
